FAERS Safety Report 5122031-9 (Version None)
Quarter: 2006Q4

REPORT INFORMATION
  Report Type: 
  Country: None (occurrence: None)
  Receive Date: 20061006
  Receipt Date: 20060928
  Transmission Date: 20070319
  Serious: Yes (Death)
  Sender: FDA-Public Use
  Company Number: FR-JNJFOC-20060904383

PATIENT
  Sex: Male
  Weight: 120 kg

DRUGS (3)
  1. RISPERDAL CONSTA [Suspect]
     Indication: PSYCHOTIC DISORDER
     Route: 030
  2. HALDOL SOLUTAB [Suspect]
     Indication: PSYCHOTIC DISORDER
     Route: 048
  3. DEPAKOTE [Concomitant]
     Route: 065

REACTIONS (2)
  - DEATH [None]
  - MYOCARDIAL INFARCTION [None]
